FAERS Safety Report 7733487-7 (Version None)
Quarter: 2011Q3

REPORT INFORMATION
  Report Type: 
  Country: None (occurrence: None)
  Receive Date: 20110901
  Receipt Date: 20110818
  Transmission Date: 20111222
  Serious: Yes (Congenital Anomaly)
  Sender: FDA-Public Use
  Company Number: 1000020997

PATIENT
  Sex: Male

DRUGS (2)
  1. OXAZEPAM [Suspect]
     Dosage: 60 MG (60 MG,1 IN 1 D),TRANSPLACENTAL
     Route: 064
  2. LEXAPRO [Suspect]
     Dosage: 20 MG (20 MG,1 IN 1 D),TRANSPLACENTAL
     Route: 064

REACTIONS (2)
  - CONGENITAL MUSCULOSKELETAL ANOMALY [None]
  - MATERNAL DRUGS AFFECTING FOETUS [None]
